FAERS Safety Report 9303286 (Version 5)
Quarter: 2014Q1

REPORT INFORMATION
  Report Type: Spontaneous
  Country: US (occurrence: US)
  Receive Date: 20130521
  Receipt Date: 20140218
  Transmission Date: 20141002
  Serious: Yes (Other)
  Sender: FDA-Public Use
  Company Number: US-RB-053789-13

PATIENT
  Age: 80 Year
  Sex: Female

DRUGS (6)
  1. SUBOXONE TABLET [Suspect]
     Indication: DRUG DEPENDENCE
     Dosage: VARIOUS DOSES
     Route: 060
     Dates: start: 20130129, end: 201301
  2. SUBOXONE FILM [Suspect]
     Dosage: SUBOXONE FILM; THE PATIENT WAS CUTTING THE FILM
     Route: 060
     Dates: start: 201301
  3. SUBOXONE FILM [Suspect]
     Dosage: SUBOXONE FILM; TOOK MORE THAN PRESCRIBED BY TAKING 2 MG/TWICE ON ONE DAY
     Route: 060
  4. SUBOXONE FILM [Suspect]
     Indication: DRUG DEPENDENCE
     Dosage: SUBOXONE FILM; CUTTING FILM INTO PIECES, TAKING LITTLE PIECES A FEW TIMES PER DAY
     Route: 060
  5. ADVIL [Concomitant]
     Indication: PAIN
     Dosage: DOSING DETAILS UNKNOWN
     Route: 065
  6. PRILOSEC [Concomitant]
     Indication: PRODUCT USED FOR UNKNOWN INDICATION
     Dosage: DOSING DETIALS UNKNOWN
     Route: 065

REACTIONS (21)
  - Gait disturbance [Not Recovered/Not Resolved]
  - Wrong technique in drug usage process [Not Recovered/Not Resolved]
  - Vomiting [Recovered/Resolved]
  - Headache [Unknown]
  - Drug withdrawal syndrome [Not Recovered/Not Resolved]
  - Nervousness [Not Recovered/Not Resolved]
  - Feeling of body temperature change [Not Recovered/Not Resolved]
  - Pain [Not Recovered/Not Resolved]
  - Dyskinesia [Not Recovered/Not Resolved]
  - Insomnia [Not Recovered/Not Resolved]
  - Therapeutic product ineffective [Unknown]
  - Suicidal ideation [Recovered/Resolved]
  - Feeling abnormal [Not Recovered/Not Resolved]
  - Decreased appetite [Not Recovered/Not Resolved]
  - Drug dependence [Not Recovered/Not Resolved]
  - Malaise [Not Recovered/Not Resolved]
  - Nausea [Not Recovered/Not Resolved]
  - Extra dose administered [Recovered/Resolved]
  - Loss of consciousness [Recovered/Resolved]
  - Convulsion [Recovered/Resolved]
  - Tremor [Recovered/Resolved]
